APPROVED DRUG PRODUCT: TOLMETIN SODIUM
Active Ingredient: TOLMETIN SODIUM
Strength: EQ 600MG BASE
Dosage Form/Route: TABLET;ORAL
Application: A073527 | Product #001
Applicant: ANI PHARMACEUTICALS INC
Approved: Jun 30, 1992 | RLD: No | RS: No | Type: DISCN